FAERS Safety Report 7227472-1 (Version None)
Quarter: 2011Q1

REPORT INFORMATION
  Report Type: 
  Country: None (occurrence: None)
  Receive Date: 20110114
  Receipt Date: 20110104
  Transmission Date: 20110831
  Serious: Yes (Other)
  Sender: FDA-Public Use
  Company Number: GXKR2011DE00466

PATIENT
  Sex: Female
  Weight: 81 kg

DRUGS (1)
  1. TRAZODONE [Suspect]
     Indication: DEPRESSION
     Dosage: 75 MG/DAILY
     Route: 048
     Dates: start: 20100701

REACTIONS (4)
  - OVARIAN CYST [None]
  - NAUSEA [None]
  - ABDOMINAL DISCOMFORT [None]
  - DECREASED APPETITE [None]
